FAERS Safety Report 4371320-4 (Version None)
Quarter: 2004Q2

REPORT INFORMATION
  Report Type: 
  Country: None (occurrence: None)
  Receive Date: 20040603
  Receipt Date: 20040519
  Transmission Date: 20050107
  Serious: Yes (Hospitalization)
  Sender: FDA-Public Use
  Company Number: 04P-163-0261445-00

PATIENT
  Age: 48 Year
  Sex: Male
  Weight: 45.3597 kg

DRUGS (2)
  1. HUMIRA [Suspect]
     Dosage: 40 MG, 1 IN 2 WK, SUBCUTANEOUS
     Route: 058
     Dates: start: 20040303
  2. NAPROXEN SODIUM [Concomitant]

REACTIONS (2)
  - BACK PAIN [None]
  - URINARY RETENTION [None]
